FAERS Safety Report 10967967 (Version 1)
Quarter: 2015Q1

REPORT INFORMATION
  Report Type: Spontaneous
  Country: US (occurrence: US)
  Receive Date: 20150330
  Receipt Date: 20150330
  Transmission Date: 20150721
  Serious: No
  Sender: FDA-Public Use
  Company Number: US-ASTRAZENECA-2014SE55963

PATIENT
  Sex: Female

DRUGS (2)
  1. PRILOSEC OTC [Suspect]
     Active Substance: OMEPRAZOLE MAGNESIUM
     Route: 048
     Dates: start: 20140730, end: 20140730
  2. PRILOSEC OTC [Suspect]
     Active Substance: OMEPRAZOLE MAGNESIUM
     Dosage: TOOK PRILOSEC OTC AT 7 AM AND ACCIDENTALLY TOOK A SECOND DOSE INSTEAD OF HEADACHE MEDICATION
     Route: 048

REACTIONS (4)
  - Headache [Unknown]
  - Accidental overdose [Unknown]
  - Wrong drug administered [Unknown]
  - Extra dose administered [Unknown]

NARRATIVE: CASE EVENT DATE: 20140730
